FAERS Safety Report 23048700 (Version 2)
Quarter: 2023Q4

REPORT INFORMATION
  Report Type: Spontaneous
  Country: US (occurrence: US)
  Receive Date: 20231010
  Receipt Date: 20231020
  Transmission Date: 20240109
  Serious: No
  Sender: FDA-Public Use
  Company Number: US-BIOVITRUM-2023-US-011450

PATIENT
  Age: 27 Year
  Sex: Male

DRUGS (1)
  1. KINERET [Suspect]
     Active Substance: ANAKINRA
     Indication: Pericarditis
     Dosage: PRN FOR A 3-4 OF DAYS (MINIMUM 3 DAYS), OD ONLY WHEN SYMPTOMATIC AND UNTIL IT RESOLVES
     Route: 058

REACTIONS (5)
  - Pericarditis [Unknown]
  - Product quality issue [Unknown]
  - Off label use [Unknown]
  - Condition aggravated [Unknown]
  - Inappropriate schedule of product administration [Unknown]
